FAERS Safety Report 9808954 (Version 1)
Quarter: 2014Q1

REPORT INFORMATION
  Report Type: Spontaneous
  Country: US (occurrence: US)
  Receive Date: 20140110
  Receipt Date: 20140110
  Transmission Date: 20141002
  Serious: Yes (Death)
  Sender: FDA-Public Use
  Company Number: US-PFIZER INC-2014004831

PATIENT
  Age: 29 Year
  Sex: Female

DRUGS (6)
  1. OXYCODONE HYDROCHLORIDE [Suspect]
     Dosage: UNK
  2. ALPRAZOLAM [Suspect]
  3. ACETAMINOPHEN/HYDROCODONE [Suspect]
     Dosage: UNK
  4. BUTALBITAL [Suspect]
  5. ACETAMINOPHEN [Suspect]
  6. LEVETIRACETAM [Suspect]

REACTIONS (1)
  - Drug abuse [Fatal]
